FAERS Safety Report 7582442-9 (Version None)
Quarter: 2011Q2

REPORT INFORMATION
  Report Type: 
  Country: None (occurrence: None)
  Receive Date: 20110630
  Receipt Date: 20110622
  Transmission Date: 20111010
  Serious: No
  Sender: FDA-Public Use
  Company Number: US-PFIZER INC-2011139591

PATIENT
  Sex: Male

DRUGS (7)
  1. SYNTHROID [Concomitant]
     Dosage: 100 UG, UNK
  2. XANAX [Concomitant]
     Dosage: 0.25 MG, UNK
  3. SUTENT [Suspect]
     Dosage: 50 MG, 1X/DAY
     Route: 048
  4. COUMADIN [Concomitant]
     Dosage: 7.5 MG, UNK
  5. LEXAPRO [Concomitant]
     Dosage: 10 MG, UNK
  6. NORVASC [Concomitant]
     Dosage: 2.5 MG, UNK
  7. LIPITOR [Concomitant]
     Dosage: 10 MG, UNK

REACTIONS (2)
  - EAR INJURY [None]
  - DYSPEPSIA [None]
